FAERS Safety Report 8860252 (Version 1)
Quarter: 2012Q4

REPORT INFORMATION
  Report Type: 
  Country: JP (occurrence: JP)
  Receive Date: 20121025
  Receipt Date: 20121025
  Transmission Date: 20130627
  Serious: Yes (Other)
  Sender: FDA-Public Use
  Company Number: PHHY2012JP095193

PATIENT
  Age: 41 Year
  Sex: Female
  Weight: 57 kg

DRUGS (7)
  1. LEPONEX / CLOZARIL [Suspect]
     Indication: SCHIZOPHRENIA
     Dosage: 12.5 mg, daily
     Route: 048
     Dates: start: 20120322
  2. LEPONEX / CLOZARIL [Suspect]
     Dosage: 200 mg daily
     Route: 048
  3. LEPONEX / CLOZARIL [Suspect]
     Dosage: 550 mg, UNK
     Route: 048
  4. LEPONEX / CLOZARIL [Suspect]
     Dosage: 600 mg daily
     Route: 048
     Dates: start: 20120912, end: 20120915
  5. LEPONEX / CLOZARIL [Suspect]
     Dosage: 300 mg, QD (morning dose of 300mg of Clozaril.)
     Route: 048
     Dates: start: 20120916, end: 20120916
  6. LEPONEX / CLOZARIL [Suspect]
     Dosage: 300 mg, daily
     Route: 048
     Dates: start: 20120917
  7. PURSENNID [Concomitant]
     Route: 048

REACTIONS (4)
  - Fall [Unknown]
  - Petit mal epilepsy [Recovered/Resolved]
  - Foaming at mouth [Unknown]
  - Muscle rigidity [Unknown]
